FAERS Safety Report 25849285 (Version 1)
Quarter: 2025Q3

REPORT INFORMATION
  Report Type: Report from Study
  Country: US (occurrence: US)
  Receive Date: 20250925
  Receipt Date: 20250925
  Transmission Date: 20251021
  Serious: Yes (Hospitalization)
  Sender: ABBVIE
  Company Number: US-ABBVIE-6470874

PATIENT
  Age: 76 Year
  Sex: Male

DRUGS (1)
  1. VYALEV [Suspect]
     Active Substance: FOSCARBIDOPA\FOSLEVODOPA
     Indication: Parkinson^s disease
     Route: 058
     Dates: start: 20250730

REACTIONS (3)
  - Rectal haemorrhage [Recovering/Resolving]
  - Catheter site mass [Not Recovered/Not Resolved]
  - Catheter site papule [Not Recovered/Not Resolved]

NARRATIVE: CASE EVENT DATE: 20250101
